FAERS Safety Report 6359338-3 (Version None)
Quarter: 2009Q3

REPORT INFORMATION
  Report Type: 
  Country: None (occurrence: None)
  Receive Date: 20090917
  Receipt Date: 20090914
  Transmission Date: 20100115
  Serious: Yes (Death, Hospitalization)
  Sender: FDA-Public Use
  Company Number: JO-BRISTOL-MYERS SQUIBB COMPANY-14777510

PATIENT
  Age: 19 Month
  Sex: Male

DRUGS (2)
  1. VINCRISTINE SULFATE [Suspect]
     Indication: RENAL NEOPLASM
     Dosage: 1.5 MG/M2
  2. ACTINOMYCIN-D [Suspect]
     Indication: RENAL NEOPLASM
     Dosage: 0.045 MG/KG

REACTIONS (1)
  - VENOOCCLUSIVE LIVER DISEASE [None]
